FAERS Safety Report 12893210 (Version 2)
Quarter: 2017Q1

REPORT INFORMATION
  Report Type: Spontaneous
  Country: GB (occurrence: GB)
  Receive Date: 20161028
  Receipt Date: 20170118
  Transmission Date: 20170428
  Serious: Yes (Other)
  Sender: FDA-Public Use
  Company Number: PHHY2016GB143601

PATIENT
  Age: 13 Year
  Sex: Male

DRUGS (3)
  1. PROPRANOLOL [Suspect]
     Active Substance: PROPRANOLOL HYDROCHLORIDE
     Indication: MIGRAINE
     Dosage: 40 MG, BID
     Route: 048
     Dates: start: 201311
  2. MONTELUKAST [Concomitant]
     Active Substance: MONTELUKAST SODIUM
     Indication: ASTHMA
     Dosage: WITHDRAWN
     Route: 065
  3. PROPRANOLOL [Suspect]
     Active Substance: PROPRANOLOL HYDROCHLORIDE
     Dosage: 20 MG, BID, AM AND PM
     Route: 048
     Dates: start: 201502, end: 201603

REACTIONS (12)
  - Headache [Unknown]
  - Mood altered [Recovered/Resolved]
  - Fatigue [Not Recovered/Not Resolved]
  - Withdrawal syndrome [Unknown]
  - Hypotension [Unknown]
  - Peripheral coldness [Unknown]
  - Osteochondrosis [Unknown]
  - Arthralgia [Unknown]
  - Infertility [Unknown]
  - Gastric ulcer perforation [Unknown]
  - Nightmare [Unknown]
  - Dizziness [Not Recovered/Not Resolved]

NARRATIVE: CASE EVENT DATE: 201311
